FAERS Safety Report 4299091-0 (Version None)
Quarter: 2004Q1

REPORT INFORMATION
  Report Type: 
  Country: None (occurrence: None)
  Receive Date: 20040219
  Receipt Date: 20040126
  Transmission Date: 20041129
  Serious: Yes (Hospitalization, Other)
  Sender: FDA-Public Use
  Company Number: FR-BRISTOL-MYERS SQUIBB COMPANY-12487831

PATIENT
  Age: 49 Year
  Sex: Male
  Weight: 55 kg

DRUGS (6)
  1. ATAZANAVIR [Suspect]
     Indication: HIV INFECTION
     Route: 048
     Dates: start: 20020611
  2. VIDEX EC [Suspect]
     Indication: HIV INFECTION
     Route: 048
     Dates: start: 19980930
  3. NORVIR [Suspect]
     Indication: HIV INFECTION
     Route: 048
     Dates: start: 20020611
  4. VIREAD [Suspect]
     Indication: HIV INFECTION
     Route: 048
     Dates: start: 20020611
  5. ZIAGEN [Suspect]
     Indication: HIV INFECTION
     Route: 048
     Dates: start: 19980930
  6. BACTRIM [Concomitant]
     Indication: PROPHYLAXIS
     Dates: start: 19961223

REACTIONS (2)
  - OESOPHAGEAL SQUAMOUS CELL CARCINOMA [None]
  - PHARYNGEAL CANCER STAGE UNSPECIFIED [None]
